FAERS Safety Report 9957445 (Version 2)
Quarter: 2014Q1

REPORT INFORMATION
  Report Type: Report from Study
  Country: US (occurrence: US)
  Receive Date: 20140304
  Receipt Date: 20140304
  Transmission Date: 20141002
  Serious: No
  Sender: FDA-Public Use
  Company Number: US-ABBVIE-13P-163-1082032-00

PATIENT
  Age: 24 Year
  Sex: Female
  Weight: 57.2 kg

DRUGS (10)
  1. HUMIRA [Suspect]
     Indication: PSORIASIS
     Dates: start: 20130212
  2. PRILOSEC [Concomitant]
     Indication: ILL-DEFINED DISORDER
  3. MAXALT [Concomitant]
     Indication: MIGRAINE
  4. ZOFRAN [Concomitant]
     Indication: MIGRAINE
  5. CALCIUM [Concomitant]
     Indication: SUPPLEMENTATION THERAPY
  6. OLEUX FOAM [Concomitant]
     Indication: SKIN DISORDER
  7. SORILUX FOAM [Concomitant]
     Indication: SKIN DISORDER
  8. DOLOVENT VITAMIN [Concomitant]
     Indication: MIGRAINE
  9. EYE DROPS [Concomitant]
     Indication: MIGRAINE
  10. PROGESTERONE [Concomitant]
     Indication: MIGRAINE

REACTIONS (12)
  - White blood cell count decreased [Not Recovered/Not Resolved]
  - Neutrophil count decreased [Not Recovered/Not Resolved]
  - Injection site pain [Recovered/Resolved]
  - Injection site swelling [Recovered/Resolved]
  - Injection site pain [Not Recovered/Not Resolved]
  - Dyspepsia [Not Recovered/Not Resolved]
  - Gastroenteritis viral [Unknown]
  - Diarrhoea [Unknown]
  - Retching [Unknown]
  - Dizziness [Unknown]
  - Headache [Unknown]
  - Malaise [Unknown]
